FAERS Safety Report 24067917 (Version 2)
Quarter: 2024Q3

REPORT INFORMATION
  Report Type: Other
  Country: GB (occurrence: GB)
  Receive Date: 20240710
  Receipt Date: 20240817
  Transmission Date: 20241017
  Serious: Yes (Disabling)
  Sender: MACLEODS
  Company Number: GB-MHRA-TPP36064774C23315082YC1719488124401

PATIENT

DRUGS (12)
  1. MEMANTINE [Suspect]
     Active Substance: MEMANTINE
     Indication: Amnesia
     Dosage: ONE TABLET EACH NIGHT TIME (FOR MEMORY) (WHITE ...
     Route: 065
     Dates: start: 20231127
  2. PRIMIDONE [Suspect]
     Active Substance: PRIMIDONE
     Indication: Ill-defined disorder
     Dosage: WEEK 1 AND 2: HALF A TABLET EACH DAY   WEEK 3 A...
     Route: 048
     Dates: start: 20240416, end: 20240627
  3. AMITRIPTYLINE HYDROCHLORIDE [Suspect]
     Active Substance: AMITRIPTYLINE HYDROCHLORIDE
     Indication: Ill-defined disorder
     Dosage: 20 MG DAILY AT NIGHT AS DIRECTED (BLUE ROU...
     Route: 065
     Dates: start: 20220516
  4. DIHYDROCODEINE [Concomitant]
     Active Substance: DIHYDROCODEINE
     Indication: Ill-defined disorder
     Dosage: ONE OR TWO AT NIGHT (WHITE CAPSULE SHAPED DHC 6...
     Route: 065
     Dates: start: 20220516
  5. POLYETHYLENE GLYCOL 3350\POTASSIUM CHLORIDE\SODIUM BICARBONATE\SODIUM [Concomitant]
     Active Substance: POLYETHYLENE GLYCOL 3350\POTASSIUM CHLORIDE\SODIUM BICARBONATE\SODIUM CHLORIDE
     Indication: Ill-defined disorder
     Dosage: ONE OR TWO DAILY, ORANGE
     Route: 065
     Dates: start: 20220516
  6. LEVOTHYROXINE [Concomitant]
     Active Substance: LEVOTHYROXINE\LEVOTHYROXINE SODIUM
     Indication: Ill-defined disorder
     Dosage: TAKE ONE TABLET EACH DAY (TOTAL 75MCG) (WHITE R...
     Route: 065
     Dates: start: 20220516
  7. METFORMIN [Concomitant]
     Active Substance: METFORMIN HYDROCHLORIDE
     Indication: Ill-defined disorder
     Dosage: ONE TABLET DAILY WITH BREAKFAST AND ONE WITH EV...
     Route: 065
     Dates: start: 20220516
  8. MOVELAT [Concomitant]
     Indication: Ill-defined disorder
     Dosage: APPLY AS REQUIRED
     Route: 065
     Dates: start: 20220516
  9. ACETAMINOPHEN [Concomitant]
     Active Substance: ACETAMINOPHEN
     Indication: Ill-defined disorder
     Dosage: WHEN REQUIRED
     Route: 065
     Dates: start: 20220516
  10. POTASSIUM BICARBONATE\SODIUM ALGINATE [Concomitant]
     Active Substance: POTASSIUM BICARBONATE\SODIUM ALGINATE
     Indication: Ill-defined disorder
     Dosage: ONE TABLET WHEN REQUIRED
     Route: 065
     Dates: start: 20220809
  11. DAPAGLIFLOZIN [Concomitant]
     Active Substance: DAPAGLIFLOZIN
     Dosage: TO EXCRETE GLUCOSE IN URINE
     Route: 065
     Dates: start: 20230928
  12. AMLODIPINE [Concomitant]
     Active Substance: AMLODIPINE BESYLATE
     Dosage: TO LOWER BLOOD PRESSURE
     Route: 065
     Dates: start: 20240120

REACTIONS (2)
  - Nausea [Unknown]
  - Dizziness [Unknown]

NARRATIVE: CASE EVENT DATE: 20240606
